FAERS Safety Report 5339997-4 (Version None)
Quarter: 2007Q2

REPORT INFORMATION
  Report Type: 
  Country: None (occurrence: None)
  Receive Date: 20070531
  Receipt Date: 20070521
  Transmission Date: 20071010
  Serious: Yes (Life-Threatening, Hospitalization)
  Sender: FDA-Public Use
  Company Number: US-ROCHE-498618

PATIENT
  Age: 57 Year
  Sex: Female
  Weight: 73.5 kg

DRUGS (3)
  1. BONIVA [Suspect]
     Indication: OSTEOARTHRITIS
     Route: 048
     Dates: start: 20050101, end: 20070101
  2. BONIVA [Suspect]
     Route: 048
     Dates: start: 20070405
  3. DOXYCYCLIN [Concomitant]
     Indication: OSTEOMYELITIS

REACTIONS (5)
  - DYSPNOEA [None]
  - FEELING HOT [None]
  - PALPITATIONS [None]
  - PHARYNGEAL OEDEMA [None]
  - SWOLLEN TONGUE [None]
